FAERS Safety Report 6580408-9 (Version None)
Quarter: 2010Q1

REPORT INFORMATION
  Report Type: 
  Country: None (occurrence: None)
  Receive Date: 20100212
  Receipt Date: 20100204
  Transmission Date: 20100710
  Serious: Yes (Other)
  Sender: FDA-Public Use
  Company Number: NL-ABBOTT-10P-114-0624371-00

PATIENT
  Age: 5 Year
  Sex: Female

DRUGS (3)
  1. VALPROIC ACID [Suspect]
     Indication: MYOCLONIC EPILEPSY
     Dosage: NOT REPORTED
  2. CLOBAZAM [Interacting]
     Indication: MYOCLONIC EPILEPSY
     Dosage: NOT REPORTED
  3. STIRIPENTOL [Interacting]
     Indication: MYOCLONIC EPILEPSY
     Dosage: NOT REPORTED

REACTIONS (4)
  - DRUG EFFECT DECREASED [None]
  - DRUG INTERACTION [None]
  - HEPATOTOXICITY [None]
  - MYOCLONIC EPILEPSY [None]
